FAERS Safety Report 16590805 (Version 1)
Quarter: 2019Q3

REPORT INFORMATION
  Report Type: Spontaneous
  Country: JP (occurrence: JP)
  Receive Date: 20190718
  Receipt Date: 20190718
  Transmission Date: 20191004
  Serious: Yes (Disabling)
  Sender: FDA-Public Use
  Company Number: JP-BAYER-2019-130765

PATIENT
  Age: 67 Year
  Sex: Male

DRUGS (1)
  1. STIVARGA [Suspect]
     Active Substance: REGORAFENIB
     Indication: COLON CANCER RECURRENT
     Dosage: 120 MG, QD
     Route: 048
     Dates: start: 20190520

REACTIONS (4)
  - Oedema [Not Recovered/Not Resolved]
  - Weight increased [Not Recovered/Not Resolved]
  - Renal disorder [Not Recovered/Not Resolved]
  - Blood creatinine increased [Not Recovered/Not Resolved]
